FAERS Safety Report 14211666 (Version 1)
Quarter: 2017Q4

REPORT INFORMATION
  Report Type: Spontaneous
  Country: US (occurrence: None)
  Receive Date: 20171121
  Receipt Date: 20171121
  Transmission Date: 20180321
  Serious: Yes (Hospitalization, Other)
  Sender: FDA-Public Use
  Company Number: None

PATIENT
  Age: 58 Year
  Sex: Female

DRUGS (10)
  1. GLEEVEC [Concomitant]
     Active Substance: IMATINIB MESYLATE
  2. ALFUZOSIN [Concomitant]
     Active Substance: ALFUZOSIN
  3. OMPERAZOLE [Concomitant]
     Active Substance: OMEPRAZOLE
  4. AMLODIPINE [Concomitant]
     Active Substance: AMLODIPINE BESYLATE
  5. FLUTICASONE. [Concomitant]
     Active Substance: FLUTICASONE
  6. FOLIC ACID. [Concomitant]
     Active Substance: FOLIC ACID
  7. METOPROLOL. [Concomitant]
     Active Substance: METOPROLOL
  8. ELIGARD [Concomitant]
     Active Substance: LEUPROLIDE ACETATE
  9. IBRANCE [Suspect]
     Active Substance: PALBOCICLIB
     Indication: NEOPLASM MALIGNANT
     Route: 048
     Dates: start: 20160924
  10. ATORVASTATIN [Concomitant]
     Active Substance: ATORVASTATIN

REACTIONS (1)
  - Limb operation [None]

NARRATIVE: CASE EVENT DATE: 2017
